FAERS Safety Report 4937732-2 (Version None)
Quarter: 2006Q1

REPORT INFORMATION
  Report Type: 
  Country: None (occurrence: None)
  Receive Date: 20060308
  Receipt Date: 20060308
  Transmission Date: 20060701
  Serious: No
  Sender: FDA-Public Use
  Company Number: None

PATIENT
  Age: 42 Year
  Sex: Female

DRUGS (1)
  1. VIGAMOX [Suspect]
     Indication: KERATITIS
     Dosage: BID- OS THEN QID
     Route: 047
     Dates: start: 20060206, end: 20060207

REACTIONS (3)
  - ALLERGIC KERATITIS [None]
  - DRUG INEFFECTIVE [None]
  - EYE INFECTION STAPHYLOCOCCAL [None]
